FAERS Safety Report 21693949 (Version 1)
Quarter: 2022Q4

REPORT INFORMATION
  Report Type: Report from Study
  Country: US (occurrence: US)
  Receive Date: 20221207
  Receipt Date: 20221207
  Transmission Date: 20230113
  Serious: Yes (Other)
  Sender: FDA-Public Use
  Company Number: US-GILEAD-2022-0607780

PATIENT
  Sex: Female

DRUGS (21)
  1. AZTREONAM LYSINE [Suspect]
     Active Substance: AZTREONAM LYSINE
     Indication: Cystic fibrosis
     Route: 055
  2. SYMDEKO [Concomitant]
     Active Substance: IVACAFTOR\TEZACAFTOR
  3. AZITHROMYCIN [Concomitant]
     Active Substance: AZITHROMYCIN
  4. CREON [Concomitant]
     Active Substance: PANCRELIPASE AMYLASE\PANCRELIPASE LIPASE\PANCRELIPASE PROTEASE
  5. ALBUTEROL SULFATE [Concomitant]
     Active Substance: ALBUTEROL SULFATE
  6. ESTRADIOL [Concomitant]
     Active Substance: ESTRADIOL
  7. MENOPUR [Concomitant]
     Active Substance: FOLLITROPIN\LUTEINIZING HORMONE
  8. PROGESTERONE [Concomitant]
     Active Substance: PROGESTERONE
  9. MEDROL [Concomitant]
     Active Substance: METHYLPREDNISOLONE
  10. LINEZOLID [Concomitant]
     Active Substance: LINEZOLID
  11. NOVAREL [Concomitant]
     Active Substance: CHORIOGONADOTROPIN ALFA
  12. ONDANSETRON HYDROCHLORIDE [Concomitant]
     Active Substance: ONDANSETRON HYDROCHLORIDE
  13. PROBIOTICS NOS [Concomitant]
     Active Substance: PROBIOTICS NOS
  14. ZOLPIDEM TARTRATE [Concomitant]
     Active Substance: ZOLPIDEM TARTRATE
  15. HYDROMORPHONE HYDROCHLORIDE [Concomitant]
     Active Substance: HYDROMORPHONE HYDROCHLORIDE
  16. PULMOZYME [Concomitant]
     Active Substance: DORNASE ALFA
  17. VITAMIN B12 [Concomitant]
     Active Substance: CYANOCOBALAMIN
  18. FERROUS SULFATE [Concomitant]
     Active Substance: FERROUS SULFATE
  19. ADVAIR HFA [Concomitant]
     Active Substance: FLUTICASONE PROPIONATE\SALMETEROL XINAFOATE
  20. LEVETIRACETAM [Concomitant]
     Active Substance: LEVETIRACETAM
  21. VITAMIN D3 [Concomitant]
     Active Substance: CHOLECALCIFEROL

REACTIONS (2)
  - Type 1 diabetes mellitus [Unknown]
  - Forced expiratory volume abnormal [Unknown]
